FAERS Safety Report 17221335 (Version 2)
Quarter: 2020Q1

REPORT INFORMATION
  Report Type: Report from Study
  Country: US (occurrence: US)
  Receive Date: 20191231
  Receipt Date: 20200204
  Transmission Date: 20200409
  Serious: Yes (Hospitalization, Other)
  Sender: FDA-Public Use
  Company Number: US-TAKEDA-2019TUS072850

PATIENT
  Sex: Female
  Weight: 72.56 kg

DRUGS (6)
  1. HUMIRA [Suspect]
     Active Substance: ADALIMUMAB
     Indication: CROHN^S DISEASE
     Dosage: UNK, Q2WEEKS
     Route: 058
     Dates: start: 201512
  2. HYDROCODONE [Concomitant]
     Active Substance: HYDROCODONE
     Indication: PAIN
     Dosage: UNK
  3. MECLIZINE [Concomitant]
     Active Substance: MECLIZINE HYDROCHLORIDE
     Indication: MENIERE^S DISEASE
     Dosage: UNK
  4. VEDOLIZUMAB [Suspect]
     Active Substance: VEDOLIZUMAB
     Indication: CROHN^S DISEASE
     Dosage: UNK
     Route: 042
     Dates: end: 20190801
  5. ZOFRAN [Concomitant]
     Active Substance: ONDANSETRON HYDROCHLORIDE
     Indication: NAUSEA
     Dosage: UNK
  6. COUMADIN [Concomitant]
     Active Substance: WARFARIN SODIUM
     Indication: THROMBOSIS
     Dosage: UNK

REACTIONS (15)
  - Rash [Unknown]
  - Dysstasia [Unknown]
  - Pain [Unknown]
  - Arthralgia [Unknown]
  - Colonic abscess [Recovered/Resolved]
  - Insomnia [Unknown]
  - Meniere^s disease [Unknown]
  - Abscess [Not Recovered/Not Resolved]
  - Dyschezia [Recovered/Resolved]
  - Colectomy [Unknown]
  - Hospitalisation [Unknown]
  - Injection site pain [Recovered/Resolved]
  - Pain [Unknown]
  - Mobility decreased [Unknown]
  - Muscle spasms [Unknown]

NARRATIVE: CASE EVENT DATE: 2019
